FAERS Safety Report 18380318 (Version 1)
Quarter: 2020Q4

REPORT INFORMATION
  Report Type: Other
  Country: GR (occurrence: GR)
  Receive Date: 20201014
  Receipt Date: 20201014
  Transmission Date: 20210114
  Serious: Yes (Hospitalization, Other)
  Sender: FDA-Public Use
  Company Number: GR-EMD SERONO-9190824

PATIENT
  Age: 82 Year
  Sex: Male

DRUGS (2)
  1. METFORMIN [Suspect]
     Active Substance: METFORMIN HYDROCHLORIDE
     Indication: TYPE 2 DIABETES MELLITUS
     Dosage: FROM 5 YEARS
  2. INSULIN GLARGINE [Suspect]
     Active Substance: INSULIN GLARGINE
     Indication: TYPE 2 DIABETES MELLITUS
     Dosage: FROM 5 YEARS

REACTIONS (9)
  - Breath sounds abnormal [Recovered/Resolved]
  - Aortic bruit [Recovered/Resolved]
  - Tachypnoea [Recovered/Resolved]
  - Confusional state [Recovered/Resolved]
  - Vomiting [Recovered/Resolved]
  - Acute myocardial infarction [Unknown]
  - Diabetic ketoacidosis [Recovered/Resolved]
  - Abdominal pain upper [Recovered/Resolved]
  - Bundle branch block right [Recovered/Resolved]
